FAERS Safety Report 7221371-7 (Version None)
Quarter: 2011Q1

REPORT INFORMATION
  Report Type: 
  Country: None (occurrence: None)
  Receive Date: 20110112
  Receipt Date: 20101228
  Transmission Date: 20110831
  Serious: No
  Sender: FDA-Public Use
  Company Number: US-B.I. PHARMACEUTICALS,INC./RIDGEFIELD-2011-BP-00328BP

PATIENT
  Sex: Female

DRUGS (5)
  1. TOPROL-XL [Concomitant]
     Indication: HEART RATE IRREGULAR
     Dosage: 1 TABLET DAILY
     Route: 048
  2. MULTIVITAMIN WOMEN'S CREAMY [Concomitant]
     Indication: ROUTINE HEALTH MAINTENANCE
     Dosage: 1 TABLET DAILY
     Route: 048
  3. PREVACID [Concomitant]
     Indication: GASTROOESOPHAGEAL REFLUX DISEASE
     Dosage: 1 TABLET DAILY
     Route: 048
     Dates: start: 20050101
  4. PRADAXA [Suspect]
     Indication: ATRIAL FIBRILLATION
     Dosage: 300 MG
     Route: 048
     Dates: start: 20101116
  5. PEPCID [Concomitant]
     Indication: GASTROOESOPHAGEAL REFLUX DISEASE
     Dosage: 1 TAB DAILY
     Route: 048
     Dates: start: 20050101

REACTIONS (2)
  - FREQUENT BOWEL MOVEMENTS [None]
  - ABDOMINAL DISCOMFORT [None]
